FAERS Safety Report 8177725-8 (Version None)
Quarter: 2012Q1

REPORT INFORMATION
  Report Type: 
  Country: None (occurrence: None)
  Receive Date: 20120301
  Receipt Date: 20120227
  Transmission Date: 20120608
  Serious: Yes (Death, Hospitalization)
  Sender: FDA-Public Use
  Company Number: PHHY2012BR016891

PATIENT
  Sex: Female

DRUGS (6)
  1. EXELON [Suspect]
     Indication: DEMENTIA ALZHEIMER'S TYPE
     Dosage: 9MG/5CM? 1 PATCH DAILY
     Route: 062
  2. DONAREN [Concomitant]
     Indication: SEDATIVE THERAPY
     Dosage: 1 TABLET DAILY
  3. HYGROTON [Concomitant]
     Indication: DIURETIC THERAPY
     Dosage: 1 DF, QOD
  4. ALPRAZOLAM [Concomitant]
     Indication: SEDATIVE THERAPY
     Dosage: 1 TABLET DAILY
  5. EXELON [Suspect]
     Dosage: 18MG/10CM? 1 PATCH DAILY
     Route: 062
  6. RISPERIDONE [Concomitant]
     Indication: SEDATIVE THERAPY
     Dosage: 2 TABLETS DAILY

REACTIONS (1)
  - PNEUMONIA [None]
